FAERS Safety Report 6347086-5 (Version None)
Quarter: 2009Q3

REPORT INFORMATION
  Report Type: 
  Country: None (occurrence: None)
  Receive Date: 20090910
  Receipt Date: 20090629
  Transmission Date: 20100115
  Serious: No
  Sender: FDA-Public Use
  Company Number: US-BAYER-200925068NA

PATIENT
  Age: 45 Year
  Sex: Female
  Weight: 52 kg

DRUGS (1)
  1. YAZ [Suspect]
     Indication: CONTRACEPTION
     Route: 048
     Dates: start: 20080501, end: 20090401

REACTIONS (8)
  - ALOPECIA [None]
  - CYSTITIS [None]
  - DECREASED APPETITE [None]
  - DEPRESSED MOOD [None]
  - DRY SKIN [None]
  - RASH MACULAR [None]
  - VULVOVAGINAL MYCOTIC INFECTION [None]
  - WEIGHT DECREASED [None]
